FAERS Safety Report 9520224 (Version 1)
Quarter: 2013Q3

REPORT INFORMATION
  Report Type: Spontaneous
  Country: US (occurrence: US)
  Receive Date: 20130912
  Receipt Date: 20130912
  Transmission Date: 20140515
  Serious: Yes (Hospitalization)
  Sender: FDA-Public Use
  Company Number: US-MERCK-1309USA002039

PATIENT
  Sex: Female

DRUGS (3)
  1. FOSAMAX [Suspect]
     Indication: OSTEOPENIA
     Dosage: UNK
     Route: 048
     Dates: start: 201008, end: 201103
  2. OXYCODONE [Concomitant]
  3. XANAX [Concomitant]

REACTIONS (17)
  - Nephrolithiasis [Not Recovered/Not Resolved]
  - Renal stone removal [Not Recovered/Not Resolved]
  - Pain in jaw [Unknown]
  - Tooth loss [Unknown]
  - Tooth injury [Unknown]
  - Abdominal pain upper [Unknown]
  - Dysphagia [Unknown]
  - Gastrointestinal obstruction [Unknown]
  - Adverse drug reaction [Unknown]
  - Adverse drug reaction [Unknown]
  - Abdominal discomfort [Unknown]
  - Gastrointestinal disorder [Unknown]
  - Intestinal obstruction [Unknown]
  - Adverse drug reaction [Unknown]
  - Blood urine present [Unknown]
  - Arrhythmia [Unknown]
  - Gastritis [Unknown]
